FAERS Safety Report 6902530-7 (Version None)
Quarter: 2010Q3

REPORT INFORMATION
  Report Type: 
  Country: None (occurrence: None)
  Receive Date: 20100730
  Receipt Date: 20100720
  Transmission Date: 20110219
  Serious: Yes (Hospitalization)
  Sender: FDA-Public Use
  Company Number: 230009K08CAN

PATIENT
  Sex: Male

DRUGS (5)
  1. REBIF [Suspect]
     Indication: MULTIPLE SCLEROSIS
     Dosage: 22 MCG, 3 IN 1 WK
     Dates: start: 20010120
  2. WARFARIN SODIUM [Concomitant]
  3. METOPROLOL SUCCINATE [Concomitant]
  4. LIPITOR [Concomitant]
  5. RAMIPRIL [Concomitant]

REACTIONS (3)
  - FALL [None]
  - FEMUR FRACTURE [None]
  - MYOCARDIAL INFARCTION [None]
